FAERS Safety Report 8004491-9 (Version None)
Quarter: 2011Q4

REPORT INFORMATION
  Report Type: 
  Country: None (occurrence: None)
  Receive Date: 20111221
  Receipt Date: 20111221
  Transmission Date: 20120403
  Serious: Yes (Hospitalization)
  Sender: FDA-Public Use
  Company Number: None

PATIENT
  Age: 77 Year
  Sex: Female
  Weight: 80.6 kg

DRUGS (11)
  1. SIMVASTATIN [Concomitant]
  2. COUMADIN [Suspect]
     Dosage: 6.5MG DAILY PO CHRONIC
     Route: 048
  3. ASPIRIN [Suspect]
     Indication: ATRIAL FIBRILLATION
     Dosage: 81 MG DAILY PO CHRONIC
     Route: 048
  4. COLTRATE [Concomitant]
  5. SOTALOL HCL [Concomitant]
  6. PEPCID [Concomitant]
  7. APAP/HYDRACODONE [Concomitant]
  8. M.V.I. [Concomitant]
  9. AGGRENOX [Suspect]
     Dosage: 1 TIMES BID PO CHRONIC
     Route: 048
  10. HYDROCHLOROTHIAZIDE [Concomitant]
  11. ACETAMINOPHEN [Concomitant]

REACTIONS (6)
  - DUODENAL ULCER [None]
  - GASTROINTESTINAL HAEMORRHAGE [None]
  - PULMONARY OEDEMA [None]
  - NODULE [None]
  - FLUID OVERLOAD [None]
  - INTERNATIONAL NORMALISED RATIO INCREASED [None]
